FAERS Safety Report 8248728-X (Version None)
Quarter: 2012Q1

REPORT INFORMATION
  Report Type: 
  Country: None (occurrence: None)
  Receive Date: 20120331
  Receipt Date: 20120326
  Transmission Date: 20120608
  Serious: Yes (Hospitalization, Other)
  Sender: FDA-Public Use
  Company Number: PHHO2012US003510

PATIENT
  Sex: Female
  Weight: 101.59 kg

DRUGS (7)
  1. SYNTHROID [Concomitant]
     Dosage: 200 MG, QD
     Route: 048
  2. TASIGNA [Suspect]
     Dosage: NO TREATMENT RECEIVED
     Dates: start: 20120302, end: 20120313
  3. TASIGNA [Suspect]
     Dosage: UNK
     Route: 048
     Dates: start: 20120314
  4. ACETAMINOPHEN AND HYDROCODONE BITARTRATE [Concomitant]
     Dosage: 5 MG TO 500 MG Q4H PRN
     Route: 048
  5. PROZAC [Concomitant]
     Dosage: 20 MG, QD
     Route: 048
  6. TASIGNA [Suspect]
     Indication: CHRONIC MYELOID LEUKAEMIA
     Dosage: 300 MG, BID
     Route: 048
     Dates: start: 20120126, end: 20120301
  7. ZOFRAN [Concomitant]
     Dosage: 8 MG, QD
     Route: 048

REACTIONS (2)
  - VULVAL CELLULITIS [None]
  - GASTROENTERITIS [None]
